FAERS Safety Report 20704446 (Version 1)
Quarter: 2022Q2

REPORT INFORMATION
  Report Type: Spontaneous
  Country: US (occurrence: None)
  Receive Date: 20220412
  Receipt Date: 20220412
  Transmission Date: 20220721
  Serious: No
  Sender: FDA-Public Use
  Company Number: None

PATIENT
  Sex: Male

DRUGS (1)
  1. AVONEX [Suspect]
     Active Substance: INTERFERON BETA-1A
     Indication: Multiple sclerosis
     Dosage: OTHER QUANTITY : 30MCG;?FREQUENCY : WEEKLY;?
     Route: 030
     Dates: start: 20170201

REACTIONS (1)
  - Urinary tract infection [None]
